FAERS Safety Report 7835401 (Version 4)
Quarter: 2013Q3

REPORT INFORMATION
  Report Type: Spontaneous
  Country: US (occurrence: US)
  Receive Date: 20110301
  Receipt Date: 20130927
  Transmission Date: 20140515
  Serious: Yes (Other)
  Sender: FDA-Public Use
  Company Number: US-BRISTOL-MYERS SQUIBB COMPANY-15010127

PATIENT
  Age: 86 Year
  Sex: Female
  Weight: 64 kg

DRUGS (3)
  1. COUMADIN [Suspect]
     Indication: ATRIAL FIBRILLATION
     Dosage: 2.5 MG AND 5 MG?ALTERNATING EVERY OTHER DAY
     Route: 048
  2. SYNTHROID [Concomitant]
  3. ENALAPRIL [Concomitant]

REACTIONS (9)
  - Monoplegia [Unknown]
  - Upper limb fracture [Unknown]
  - Fall [Unknown]
  - Ischaemic stroke [Unknown]
  - Pain in extremity [Unknown]
  - Constipation [Unknown]
  - Urinary tract infection [Unknown]
  - Epistaxis [Unknown]
  - Gastrooesophageal reflux disease [Unknown]
